FAERS Safety Report 16942567 (Version 2)
Quarter: 2020Q3

REPORT INFORMATION
  Report Type: Spontaneous
  Country: JP (occurrence: JP)
  Receive Date: 20191021
  Receipt Date: 20200921
  Transmission Date: 20201102
  Serious: Yes (Death)
  Sender: FDA-Public Use
  Company Number: JP-PROGENICS PHARMACEUTICALS-2019PGE00003

PATIENT

DRUGS (4)
  1. IOBENGUANE (131 I) [Suspect]
     Active Substance: IOBENGUANE I-131
     Indication: NEUROBLASTOMA
     Dosage: 518 OR 666 MBQKG, OVER 1 H ON DAY 0
     Route: 042
  2. 131I?METAIODOBENZYLGUANIDINE (131I?MIBG) (MANUFACTURED BY POLATOM) [Suspect]
     Active Substance: IOBENGUANE I-131
     Indication: NEUROBLASTOMA
     Dosage: 518 OR 666 MBQKG, OVER 1 H ON DAY 0
     Route: 042
  3. POTASSIUM IODIDE. [Concomitant]
     Active Substance: POTASSIUM IODIDE
     Route: 048
  4. UNSPECIFIED SEROTONIN TYPE 3 RECEPTOR ANTAGONIST [Concomitant]
     Route: 065

REACTIONS (1)
  - Myelosuppression [Fatal]
